FAERS Safety Report 4479537-5 (Version None)
Quarter: 2004Q4

REPORT INFORMATION
  Report Type: 
  Country: None (occurrence: None)
  Receive Date: 20041015
  Receipt Date: 20041008
  Transmission Date: 20050328
  Serious: Yes (Death)
  Sender: FDA-Public Use
  Company Number: KII-1998-0001396

PATIENT
  Sex: Female

DRUGS (2)
  1. SENOKOT [Suspect]
     Indication: DRUG USE FOR UNKNOWN INDICATION
  2. OPIOIDS [Suspect]
     Indication: CANCER PAIN

REACTIONS (2)
  - CONDITION AGGRAVATED [None]
  - LUNG NEOPLASM MALIGNANT [None]
